FAERS Safety Report 9239839 (Version 2)
Quarter: 2013Q2

REPORT INFORMATION
  Report Type: Report from Study
  Country: FR (occurrence: FR)
  Receive Date: 20130418
  Receipt Date: 20130611
  Transmission Date: 20140414
  Serious: Yes (Hospitalization)
  Sender: FDA-Public Use
  Company Number: FR-ALLERGAN-1305070US

PATIENT
  Age: 71 Year
  Sex: Male
  Weight: 75 kg

DRUGS (2)
  1. DEX 0.7MG INS (9632X) [Suspect]
     Indication: RETINAL VEIN OCCLUSION
     Dosage: 0.7 MG, SINGLE
     Route: 031
     Dates: start: 20120717, end: 20120717
  2. DEX 0.7MG INS (9632X) [Suspect]
     Dosage: 0.7 MG, SINGLE
     Route: 031
     Dates: start: 20120321, end: 20120321

REACTIONS (1)
  - Cataract subcapsular [Recovered/Resolved]
